FAERS Safety Report 18557962 (Version 1)
Quarter: 2020Q4

REPORT INFORMATION
  Report Type: Spontaneous
  Country: US (occurrence: US)
  Receive Date: 20201130
  Receipt Date: 20201130
  Transmission Date: 20210114
  Serious: Yes (Hospitalization, Other)
  Sender: FDA-Public Use
  Company Number: US-AUROBINDO-AUR-APL-2020-058078

PATIENT
  Age: 17 Year
  Sex: Female

DRUGS (14)
  1. LITHIUM. [Concomitant]
     Active Substance: LITHIUM
     Dosage: 300 MILLIGRAM, ONCE A DAY (300 MG DAILY AND 600 MG AT BEDTIME)
     Route: 065
  2. CLOZAPINE. [Suspect]
     Active Substance: CLOZAPINE
     Dosage: 25 MILLIGRAM, ONCE A DAY
     Route: 065
  3. CLOZAPINE. [Suspect]
     Active Substance: CLOZAPINE
     Dosage: 100 MILLIGRAM, TWO TIMES A DAY
     Route: 065
  4. NAPROXEN. [Concomitant]
     Active Substance: NAPROXEN
     Indication: PAIN
     Dosage: UNK, AS NECESSARY
     Route: 065
  5. OLANZAPINE. [Concomitant]
     Active Substance: OLANZAPINE
     Indication: PRODUCT USED FOR UNKNOWN INDICATION
     Dosage: 5 MILLIGRAM
     Route: 030
  6. LITHIUM. [Concomitant]
     Active Substance: LITHIUM
     Indication: MOOD SWINGS
     Dosage: 600 MILLIGRAM, ONCE A DAY (300 MG DAILY AND 600 MG AT BEDTIME)
     Route: 065
  7. LURASIDONE [Concomitant]
     Active Substance: LURASIDONE
     Indication: PSYCHOTIC SYMPTOM
     Dosage: 60 MILLIGRAM, ONCE A DAY
     Route: 065
  8. CLONIDINE. [Concomitant]
     Active Substance: CLONIDINE
     Indication: AGGRESSION
     Dosage: 0.1 MILLIGRAM, ONCE A DAY
     Route: 065
  9. LORAZEPAM. [Concomitant]
     Active Substance: LORAZEPAM
     Indication: ANXIETY
     Dosage: UNK, AS NECESSARY
     Route: 065
  10. CLOZAPINE. [Suspect]
     Active Substance: CLOZAPINE
     Dosage: 125 MILLIGRAM, ONCE A DAY (CLOZAPINE 100 MG DAILY AND 125 MG AT BEDTIME)
     Route: 065
  11. CLOZAPINE. [Suspect]
     Active Substance: CLOZAPINE
     Dosage: UNK (TITRATED SLOWLY UPWARD)
     Route: 065
  12. METFORMIN [Concomitant]
     Active Substance: METFORMIN HYDROCHLORIDE
     Indication: PROPHYLAXIS
     Dosage: 500 MILLIGRAM, ONCE A DAY
     Route: 065
  13. CLOZAPINE. [Suspect]
     Active Substance: CLOZAPINE
     Indication: SCHIZOAFFECTIVE DISORDER BIPOLAR TYPE
     Dosage: 100 MILLIGRAM, ONCE A DAY (CLOZAPINE 100 MG DAILY AND 125 MG AT BEDTIME)
     Route: 065
  14. RISPERIDONE. [Concomitant]
     Active Substance: RISPERIDONE
     Indication: PSYCHOTIC SYMPTOM
     Dosage: UNK (GRADUALLY DECREASED TO DISCONTINUATION WITH CROSS-TAPER OF INCREASING DOSES OF CLOZAPINE)
     Route: 065

REACTIONS (3)
  - Salivary hypersecretion [Recovered/Resolved]
  - Dry mouth [Recovered/Resolved]
  - Catatonia [Recovered/Resolved]
